FAERS Safety Report 4855028-4 (Version None)
Quarter: 2005Q4

REPORT INFORMATION
  Report Type: 
  Country: None (occurrence: None)
  Receive Date: 20051214
  Receipt Date: 20051202
  Transmission Date: 20060501
  Serious: Yes (Hospitalization)
  Sender: FDA-Public Use
  Company Number: 2005164568

PATIENT
  Age: 32 Year
  Sex: Male

DRUGS (4)
  1. ARTHROTEC [Suspect]
     Indication: GOUT
     Dosage: 150 (75, 2 IN 1 D), ORAL
     Route: 048
     Dates: start: 20051104, end: 20051111
  2. PARACETAMOL (PARACETAMOL) [Concomitant]
  3. RENNIE (CALCIUM CARBONATE MAGNESIUM CARBONATE, PEPPERMINT OIL) [Concomitant]
  4. ALLOPURINOL [Concomitant]

REACTIONS (3)
  - GASTROINTESTINAL PAIN [None]
  - HAEMATEMESIS [None]
  - VOMITING [None]
